FAERS Safety Report 17308189 (Version 2)
Quarter: 2020Q1

REPORT INFORMATION
  Report Type: Spontaneous
  Country: JP (occurrence: JP)
  Receive Date: 20200123
  Receipt Date: 20200207
  Transmission Date: 20200409
  Serious: Yes (Hospitalization)
  Sender: FDA-Public Use
  Company Number: JP-TEVA-2020-JP-1171169

PATIENT
  Age: 26 Year
  Sex: Male
  Weight: 52.7 kg

DRUGS (2)
  1. LENVATINIB [Interacting]
     Active Substance: LENVATINIB
     Indication: HEPATOCELLULAR CARCINOMA
     Route: 065
  2. WARFARIN [Suspect]
     Active Substance: WARFARIN
     Indication: ANTICOAGULANT THERAPY
     Route: 065

REACTIONS (7)
  - International normalised ratio increased [Unknown]
  - Subcutaneous haematoma [Unknown]
  - Epistaxis [Unknown]
  - Palmar-plantar erythrodysaesthesia syndrome [Unknown]
  - Duodenal ulcer haemorrhage [Unknown]
  - Prothrombin time prolonged [Unknown]
  - Drug interaction [Unknown]
